FAERS Safety Report 6600139-6 (Version None)
Quarter: 2010Q1

REPORT INFORMATION
  Report Type: 
  Country: None (occurrence: None)
  Receive Date: 20100224
  Receipt Date: 20100217
  Transmission Date: 20100710
  Serious: Yes (Other)
  Sender: FDA-Public Use
  Company Number: B0631123A

PATIENT
  Sex: Female
  Weight: 50 kg

DRUGS (1)
  1. NIQUITIN CQ 21MG [Suspect]
     Dosage: 1PAT PER DAY
     Route: 062
     Dates: start: 20100127, end: 20100128

REACTIONS (3)
  - ANGINA PECTORIS [None]
  - APPLICATION SITE PAIN [None]
  - PALPITATIONS [None]
